FAERS Safety Report 5245574-6 (Version None)
Quarter: 2007Q1

REPORT INFORMATION
  Report Type: 
  Country: None (occurrence: None)
  Receive Date: 20070216
  Receipt Date: 20070131
  Transmission Date: 20070707
  Serious: Yes (Disabling)
  Sender: FDA-Public Use
  Company Number: 2007AD000009

PATIENT
  Age: 56 Year
  Sex: Female

DRUGS (1)
  1. CEPHALEXIN [Suspect]
     Indication: CYSTITIS
     Dosage: 500 MG; TID; PO
     Route: 048
     Dates: start: 20070106, end: 20070113

REACTIONS (4)
  - DIZZINESS [None]
  - NAUSEA [None]
  - PRURITUS [None]
  - RASH [None]
